FAERS Safety Report 9175546 (Version 7)
Quarter: 2014Q2

REPORT INFORMATION
  Report Type: Report from Study
  Country: DK (occurrence: DK)
  Receive Date: 20130320
  Receipt Date: 20140501
  Transmission Date: 20141212
  Serious: Yes (Hospitalization)
  Sender: FDA-Public Use
  Company Number: DK-PFIZER INC-2013088960

PATIENT
  Age: 45 Year
  Sex: Male
  Weight: 86 kg

DRUGS (10)
  1. ADRIAMYCIN [Suspect]
     Indication: B-CELL LYMPHOMA
     Dosage: UNK
  2. RITUXIMAB [Suspect]
     Indication: B-CELL LYMPHOMA
     Dosage: LAST DOSE RECEIVED ON 22JAN2013 AS 783.75 MG, EVERY 3 WEEKS (1 IN 21 D)
     Route: 042
     Dates: start: 20121008, end: 20130212
  3. VINCRISTINE [Suspect]
     Indication: B-CELL LYMPHOMA
     Dosage: UNK
  4. DICILLIN [Concomitant]
     Indication: INFECTION PROPHYLAXIS
     Dosage: UNK
     Dates: start: 20130129, end: 20130202
  5. DICILLIN [Concomitant]
     Dosage: UNK
     Dates: start: 20130127, end: 20130202
  6. FLUCONAZOLE [Concomitant]
     Indication: MUCOSAL INFLAMMATION
     Dosage: 200 MG, UNK
     Dates: start: 20130201, end: 20130210
  7. ONDANSETRON [Concomitant]
     Indication: NAUSEA
     Dosage: UNK
     Dates: start: 20121008
  8. PANTOLOC [Concomitant]
     Indication: DYSPEPSIA
     Dosage: UNK
     Dates: start: 20121008
  9. NEULASTA [Concomitant]
     Indication: LEUKOPENIA
     Dosage: UNK
     Dates: start: 20130126, end: 20130126
  10. VEPICOMBIN [Concomitant]
     Indication: INFECTION PROPHYLAXIS
     Dosage: UNK
     Dates: start: 20130129, end: 20130202

REACTIONS (2)
  - Pain in extremity [Recovered/Resolved]
  - Infection [Recovered/Resolved]
